FAERS Safety Report 4744015-2 (Version None)
Quarter: 2005Q3

REPORT INFORMATION
  Report Type: 
  Country: None (occurrence: None)
  Receive Date: 20050809
  Receipt Date: 20050727
  Transmission Date: 20060218
  Serious: Yes (Other)
  Sender: FDA-Public Use
  Company Number: AU-2005-015404

PATIENT
  Age: 38 Year
  Sex: Female

DRUGS (4)
  1. CAMPATH [Suspect]
     Indication: RENAL TRANSPLANT
     Dosage: 20 MG 1 DOSE INTRAVENOUS
     Route: 042
  2. METHYLPREDNISOLONE [Concomitant]
  3. CYCLOSPORINE [Concomitant]
  4. MYCOPHENOLATE MOFETIL(MYCOPHENOLATE MOFETIL) [Concomitant]

REACTIONS (14)
  - ANAEMIA [None]
  - ANURIA [None]
  - ARTERITIS [None]
  - HAEMODIALYSIS [None]
  - HAEMORRHAGIC INFARCTION [None]
  - HYPERCREATININAEMIA [None]
  - LEUKOPENIA [None]
  - RENAL DISORDER [None]
  - RENAL TUBULAR NECROSIS [None]
  - THROMBOSIS [None]
  - TRANSPLANT FAILURE [None]
  - TRANSPLANT REJECTION [None]
  - URETERITIS [None]
  - URINARY TRACT OBSTRUCTION [None]
